FAERS Safety Report 22168669 (Version 1)
Quarter: 2023Q2

REPORT INFORMATION
  Report Type: Spontaneous
  Country: JP (occurrence: JP)
  Receive Date: 20230403
  Receipt Date: 20230403
  Transmission Date: 20230722
  Serious: Yes (Other)
  Sender: FDA-Public Use
  Company Number: JP-JNJFOC-20210929128

PATIENT
  Age: 5 Decade
  Sex: Female

DRUGS (4)
  1. ACETAMINOPHEN\TRAMADOL [Suspect]
     Active Substance: ACETAMINOPHEN\TRAMADOL
     Indication: Pain
     Route: 048
  2. NITRAZEPAM [Suspect]
     Active Substance: NITRAZEPAM
     Indication: Product used for unknown indication
     Dosage: 22 TABLETS
     Route: 048
  3. VENLAFAXINE HYDROCHLORIDE [Concomitant]
     Active Substance: VENLAFAXINE HYDROCHLORIDE
     Dosage: 60 CAPSULES
     Route: 048
  4. BROMAZEPAM [Concomitant]
     Active Substance: BROMAZEPAM
     Dosage: 24 TABLETS
     Route: 048

REACTIONS (6)
  - Altered state of consciousness [Recovering/Resolving]
  - Respiratory depression [Unknown]
  - Pneumonia aspiration [Recovering/Resolving]
  - Toxicity to various agents [Recovering/Resolving]
  - Hepatic enzyme increased [Unknown]
  - Overdose [Unknown]
